FAERS Safety Report 4519902-0 (Version None)
Quarter: 2004Q4

REPORT INFORMATION
  Report Type: 
  Country: None (occurrence: None)
  Receive Date: 20041207
  Receipt Date: 20041124
  Transmission Date: 20050328
  Serious: Yes (Life-Threatening, Hospitalization)
  Sender: FDA-Public Use
  Company Number: FRWYE233325NOV04

PATIENT
  Age: 56 Year
  Sex: Male

DRUGS (2)
  1. ENBREL [Suspect]
     Indication: RHEUMATOID ARTHRITIS
     Dosage: UNKNOWN
     Route: 058
     Dates: start: 20040903, end: 20041025
  2. PREDNISONE TAB [Suspect]
     Indication: RHEUMATOID ARTHRITIS
     Route: 048

REACTIONS (5)
  - DIALYSIS [None]
  - MALLORY-WEISS SYNDROME [None]
  - RENAL FAILURE ACUTE [None]
  - STAPHYLOCOCCAL ABSCESS [None]
  - STAPHYLOCOCCAL SEPSIS [None]
